FAERS Safety Report 4642363-8 (Version None)
Quarter: 2005Q2

REPORT INFORMATION
  Report Type: 
  Country: None (occurrence: None)
  Receive Date: 20050420
  Receipt Date: 20050411
  Transmission Date: 20051028
  Serious: Yes (Death, Life-Threatening, Hospitalization, Disabling, Other)
  Sender: FDA-Public Use
  Company Number: 2005EU000233

PATIENT
  Age: 34 Year
  Sex: Female
  Weight: 54 kg

DRUGS (8)
  1. TACROLIMUS CAPSULES (TACROLIMUS) CAPSULES [Suspect]
     Indication: LIVER TRANSPLANT
     Dosage: SEE IMAGE
     Route: 048
     Dates: start: 20050124, end: 20050125
  2. TACROLIMUS CAPSULES (TACROLIMUS) CAPSULES [Suspect]
     Indication: LIVER TRANSPLANT
     Dosage: SEE IMAGE
     Route: 048
     Dates: start: 20050126, end: 20050126
  3. TACROLIMUS CAPSULES (TACROLIMUS) CAPSULES [Suspect]
     Indication: LIVER TRANSPLANT
     Dosage: SEE IMAGE
     Route: 048
     Dates: start: 20050127, end: 20050129
  4. TACROLIMUS CAPSULES (TACROLIMUS) CAPSULES [Suspect]
     Indication: LIVER TRANSPLANT
     Dosage: SEE IMAGE
     Route: 048
     Dates: start: 20050129, end: 20050201
  5. CYCLOSPORINE [Suspect]
     Indication: LIVER TRANSPLANT
     Dosage: 50.00 MG, UID/QD, IV NOS
     Route: 042
     Dates: start: 20050210, end: 20050220
  6. CELLCEPT [Concomitant]
  7. PREDNISOLONE [Concomitant]
  8. VALACYCLOVIR HCL [Concomitant]

REACTIONS (5)
  - HAEMOLYTIC ANAEMIA [None]
  - HAEMOLYTIC URAEMIC SYNDROME [None]
  - IMMUNOSUPPRESSANT DRUG LEVEL INCREASED [None]
  - MULTI-ORGAN FAILURE [None]
  - THROMBOCYTOPENIA [None]
